FAERS Safety Report 9796770 (Version 3)
Quarter: 2014Q1

REPORT INFORMATION
  Report Type: Report from Study
  Country: DE (occurrence: DE)
  Receive Date: 20140103
  Receipt Date: 20140213
  Transmission Date: 20141002
  Serious: Yes (Death, Other)
  Sender: FDA-Public Use
  Company Number: DE-ABBVIE-13P-062-1160617-00

PATIENT
  Age: 83 Year
  Sex: Male

DRUGS (9)
  1. LEUPRORELIN ACETATE [Suspect]
     Indication: PROSTATE CANCER
     Route: 058
     Dates: start: 20120509, end: 20131205
  2. BICALUTIN [Concomitant]
     Indication: PRODUCT USED FOR UNKNOWN INDICATION
     Dates: start: 2013
  3. DIURETIC [Concomitant]
     Indication: PRODUCT USED FOR UNKNOWN INDICATION
  4. BETA BLOCKING AGENTS [Concomitant]
     Indication: PRODUCT USED FOR UNKNOWN INDICATION
  5. ACETYLSALICYLIC ACID [Concomitant]
     Indication: PRODUCT USED FOR UNKNOWN INDICATION
  6. OTHER THERAPEUTIC PRODUCTS [Concomitant]
     Indication: OSTEOPOROSIS PROPHYLAXIS
  7. PREDNISOLONE [Concomitant]
     Indication: PRODUCT USED FOR UNKNOWN INDICATION
  8. PREDNISOLONE [Concomitant]
     Indication: PRODUCT USED FOR UNKNOWN INDICATION
     Dates: start: 20131023
  9. ZYTIGA [Concomitant]
     Indication: PRODUCT USED FOR UNKNOWN INDICATION
     Dates: start: 20131023

REACTIONS (8)
  - Prostate cancer [Fatal]
  - Blood lactate dehydrogenase increased [Recovering/Resolving]
  - Blood creatinine increased [Unknown]
  - Blood alkaline phosphatase increased [Recovering/Resolving]
  - Haemoglobin decreased [Unknown]
  - Dysphagia [Unknown]
  - Prostatic specific antigen increased [Unknown]
  - Arthralgia [Unknown]
